FAERS Safety Report 5575440-8 (Version None)
Quarter: 2007Q4

REPORT INFORMATION
  Report Type: 
  Country: None (occurrence: None)
  Receive Date: 20071227
  Receipt Date: 20071219
  Transmission Date: 20080405
  Serious: Yes (Hospitalization)
  Sender: FDA-Public Use
  Company Number: FR-BOEHRINGER INGELHEIM PHARMACEUTICALS, INC.-2007-FF-01185FF

PATIENT
  Age: 71 Year
  Sex: Male

DRUGS (2)
  1. MECIR LP 0.4 [Suspect]
     Indication: BENIGN PROSTATIC HYPERPLASIA
     Route: 048
     Dates: start: 20070201, end: 20071201
  2. AVODART [Concomitant]
     Dates: end: 20071201

REACTIONS (2)
  - ANGIOEDEMA [None]
  - GENERALISED OEDEMA [None]
